FAERS Safety Report 9156863 (Version 2)
Quarter: 2014Q1

REPORT INFORMATION
  Report Type: Spontaneous
  Country: US (occurrence: US)
  Receive Date: 20130312
  Receipt Date: 20140107
  Transmission Date: 20141002
  Serious: Yes (Hospitalization)
  Sender: FDA-Public Use
  Company Number: US-BAYER-2013-027959

PATIENT
  Age: 43 Year
  Sex: Female
  Weight: 87.98 kg

DRUGS (19)
  1. YAZ [Suspect]
     Indication: CONTRACEPTION
     Dosage: UNK
     Dates: start: 2002, end: 201207
  2. YASMIN [Suspect]
     Indication: CONTRACEPTION
     Dosage: UNK
     Dates: start: 2002, end: 201207
  3. BEYAZ [Suspect]
     Indication: CONTRACEPTION
     Dosage: UNK
     Dates: start: 201204, end: 201207
  4. GIANVI [Suspect]
     Indication: CONTRACEPTION
  5. SYNTHROID [Concomitant]
     Dosage: 0.137 MG, UNK
  6. THYROID [Concomitant]
     Dosage: 90 MG, UNK
  7. NYSTATIN W/TRIAMCINOLONE [NYSTATIN,TRIAMCINOLONE] [Concomitant]
     Dosage: 15 G, UNK
  8. ARMOUR THYROID [Concomitant]
     Dosage: 150 MG, UNK
  9. HCG [Concomitant]
     Route: 058
  10. LEXAPRO [Concomitant]
     Dosage: 10 MG, UNK
  11. ALLEGRA [Concomitant]
  12. MORPHINE [Concomitant]
  13. FEOSOL [Concomitant]
  14. LORTAB [Concomitant]
  15. MOTRIN [Concomitant]
  16. MEDROL [Concomitant]
  17. PROGESTERONE [Concomitant]
  18. SINGULAIR [Concomitant]
  19. DHEA [Concomitant]

REACTIONS (2)
  - Pulmonary embolism [None]
  - Deep vein thrombosis [None]
